FAERS Safety Report 9586240 (Version 2)
Quarter: 2013Q4

REPORT INFORMATION
  Report Type: Spontaneous
  Country: HU (occurrence: HU)
  Receive Date: 20131003
  Receipt Date: 20131003
  Transmission Date: 20140711
  Serious: Yes (Hospitalization)
  Sender: FDA-Public Use
  Company Number: HU-SA-POMP-1003255

PATIENT
  Age: 10 Month
  Sex: Female
  Weight: 7.6 kg

DRUGS (5)
  1. MYOZYME [Suspect]
     Dosage: UNK
     Route: 042
     Dates: start: 20130313
  2. MYOZYME [Suspect]
     Indication: GLYCOGEN STORAGE DISEASE TYPE II
     Dosage: UNK
     Route: 042
     Dates: start: 20130313
  3. CAPTOPRIL [Concomitant]
     Dosage: UNK
  4. FUROSEMIDE [Concomitant]
     Dosage: UNK
  5. POTASSIUM CHLORIDE [Concomitant]
     Dosage: UNK

REACTIONS (5)
  - Bronchitis [Recovered/Resolved]
  - Anaemia [Recovered/Resolved]
  - Dehydration [Recovered/Resolved]
  - Viral infection [Recovered/Resolved]
  - Pyrexia [Recovered/Resolved]
